FAERS Safety Report 9874071 (Version 2)
Quarter: 2014Q1

REPORT INFORMATION
  Report Type: Other
  Country: US (occurrence: US)
  Receive Date: 20140206
  Receipt Date: 20140206
  Transmission Date: 20141002
  Serious: No
  Sender: FDA-Public Use
  Company Number: US-ACORDA-ACO_34686_2013

PATIENT
  Age: 56 Year
  Sex: Female
  Weight: 64.85 kg

DRUGS (1)
  1. AMPYRA [Suspect]
     Indication: GAIT DISTURBANCE
     Dosage: 10 MG, BID
     Route: 048
     Dates: start: 20130130, end: 20130227

REACTIONS (2)
  - Thinking abnormal [Unknown]
  - Balance disorder [Recovering/Resolving]
